FAERS Safety Report 10368529 (Version 1)
Quarter: 2014Q3

REPORT INFORMATION
  Report Type: Spontaneous
  Country: US (occurrence: None)
  Receive Date: 20140806
  Receipt Date: 20140806
  Transmission Date: 20150326
  Serious: Yes (Other)
  Sender: FDA-Public Use
  Company Number: None

PATIENT
  Age: 82 Year
  Sex: Female
  Weight: 48.08 kg

DRUGS (3)
  1. WARFARIN [Suspect]
     Active Substance: WARFARIN
     Indication: PULMONARY EMBOLISM
     Dosage: 1 MG TABLET, AS DIRECTED BY AC CLINIC, ORAL
     Route: 048
     Dates: start: 200010, end: 200011
  2. WARFARIN [Suspect]
     Active Substance: WARFARIN
     Indication: DEEP VEIN THROMBOSIS
     Dosage: 1 MG TABLET, AS DIRECTED BY AC CLINIC, ORAL
     Route: 048
     Dates: start: 200010, end: 200011
  3. WARFARIN [Suspect]
     Active Substance: WARFARIN
     Indication: DISEASE RECURRENCE
     Dosage: 1 MG TABLET, AS DIRECTED BY AC CLINIC, ORAL
     Route: 048
     Dates: start: 200010, end: 200011

REACTIONS (2)
  - Hypersensitivity [None]
  - Drug ineffective [None]

NARRATIVE: CASE EVENT DATE: 20080418
